FAERS Safety Report 8084535-9 (Version None)
Quarter: 2012Q1

REPORT INFORMATION
  Report Type: 
  Country: None (occurrence: None)
  Receive Date: 20120128
  Receipt Date: 20110331
  Transmission Date: 20120608
  Serious: No
  Sender: FDA-Public Use
  Company Number: US-ABBOTT-11P-163-0716615-00

PATIENT
  Sex: Female
  Weight: 80.812 kg

DRUGS (8)
  1. OMEGA 3-6-9 [Concomitant]
     Indication: SUPPLEMENTATION THERAPY
  2. HUMIRA [Suspect]
     Indication: PSORIATIC ARTHROPATHY
     Route: 058
  3. METFFORMIN HYDROCHLORIDE [Concomitant]
     Indication: HORMONE LEVEL ABNORMAL
  4. COQ10 [Concomitant]
     Indication: VITAMIN SUPPLEMENTATION
  5. METFFORMIN HYDROCHLORIDE [Concomitant]
     Indication: WEIGHT DECREASED
  6. MULTI-VITAMIN [Concomitant]
     Indication: VITAMIN SUPPLEMENTATION
  7. MILK THISTLE [Concomitant]
     Indication: SUPPLEMENTATION THERAPY
  8. GLUCOSAMINE WITH MSN [Concomitant]
     Indication: SUPPLEMENTATION THERAPY

REACTIONS (3)
  - INJECTION SITE ERYTHEMA [None]
  - INJECTION SITE PAPULE [None]
  - INJECTION SITE SWELLING [None]
